FAERS Safety Report 7012176-0 (Version None)
Quarter: 2010Q3

REPORT INFORMATION
  Report Type: 
  Country: None (occurrence: None)
  Receive Date: 20100910
  Receipt Date: 20090923
  Transmission Date: 20110219
  Serious: Yes (Hospitalization)
  Sender: FDA-Public Use
  Company Number: 1000009092

PATIENT
  Age: 61 Year
  Sex: Female

DRUGS (1)
  1. CELEXA [Suspect]
     Indication: DEPRESSION
     Dosage: 20 MG (20 MG,1 IN 1 D),ORAL; 40 MG (40MG,1 IN 1 D),ORAL
     Route: 048
     Dates: start: 20071101, end: 20080901

REACTIONS (1)
  - PANCREATITIS [None]
